FAERS Safety Report 18761092 (Version 1)
Quarter: 2021Q1

REPORT INFORMATION
  Report Type: Report from Study
  Country: US (occurrence: US)
  Receive Date: 20210120
  Receipt Date: 20210120
  Transmission Date: 20210419
  Serious: Yes (Death)
  Sender: FDA-Public Use
  Company Number: US-ASTRAZENECA-2021A009730

PATIENT
  Age: 25101 Day
  Sex: Female

DRUGS (1)
  1. TAGRISSO [Suspect]
     Active Substance: OSIMERTINIB
     Indication: LUNG NEOPLASM MALIGNANT
     Route: 048
     Dates: start: 20190323

REACTIONS (3)
  - Syncope [Fatal]
  - Death [Fatal]
  - Haematemesis [Fatal]

NARRATIVE: CASE EVENT DATE: 20210115
